FAERS Safety Report 9055231 (Version 1)
Quarter: 2013Q1

REPORT INFORMATION
  Report Type: Report from Study
  Country: US (occurrence: US)
  Receive Date: 20130206
  Receipt Date: 20130206
  Transmission Date: 20140127
  Serious: Yes (Hospitalization)
  Sender: FDA-Public Use
  Company Number: US-ROCHE-1188011

PATIENT
  Sex: Male
  Weight: 67.19 kg

DRUGS (1)
  1. OMALIZUMAB [Suspect]
     Indication: ASTHMA
     Dosage: TWO INJECTIONS
     Route: 058
     Dates: start: 201209

REACTIONS (3)
  - Transient ischaemic attack [Unknown]
  - Viral infection [Recovered/Resolved]
  - Alopecia [Not Recovered/Not Resolved]
